FAERS Safety Report 25877177 (Version 1)
Quarter: 2025Q4

REPORT INFORMATION
  Report Type: Spontaneous
  Country: US (occurrence: None)
  Receive Date: 20251002
  Receipt Date: 20251002
  Transmission Date: 20260118
  Serious: Yes (Hospitalization)
  Sender: FDA-CTU
  Company Number: None

PATIENT
  Age: 64 Year
  Sex: Male

DRUGS (1)
  1. POMALYST [Suspect]
     Active Substance: POMALIDOMIDE
     Indication: Plasma cell myeloma
     Dosage: 2MG QD ORAL ?
     Route: 048
     Dates: start: 20250516, end: 20250913

REACTIONS (7)
  - Diarrhoea [None]
  - Weight decreased [None]
  - Fatigue [None]
  - Confusional state [None]
  - Dizziness [None]
  - Clostridium difficile infection [None]
  - Influenza [None]

NARRATIVE: CASE EVENT DATE: 20250913
